FAERS Safety Report 5148800-7 (Version None)
Quarter: 2006Q4

REPORT INFORMATION
  Report Type: 
  Country: None (occurrence: None)
  Receive Date: 20061107
  Receipt Date: 20061026
  Transmission Date: 20070319
  Serious: Yes (Hospitalization)
  Sender: FDA-Public Use
  Company Number: 2006RL000119

PATIENT
  Age: 75 Year
  Sex: Female
  Weight: 72.8023 kg

DRUGS (6)
  1. RYTHMOL [Suspect]
     Indication: ATRIAL FIBRILLATION
     Dosage: 225 MG BID PO
     Route: 048
     Dates: start: 20051201
  2. DIGOXIN [Suspect]
     Indication: ATRIAL FIBRILLATION
     Dosage: 0.25 MG QD PO
     Route: 048
     Dates: start: 20051116, end: 20051211
  3. METOPROLOL [Suspect]
     Indication: ATRIAL FIBRILLATION
     Dosage: 25 MG BID PO
     Route: 048
     Dates: start: 20051116, end: 20051211
  4. FOSAMAX [Concomitant]
  5. TAMOXIFEN CITRATE [Concomitant]
  6. WARFARIN SODIUM [Concomitant]

REACTIONS (6)
  - BUNDLE BRANCH BLOCK LEFT [None]
  - DRUG INEFFECTIVE [None]
  - ELECTROCARDIOGRAM ST SEGMENT ABNORMAL [None]
  - ELECTROCARDIOGRAM T WAVE ABNORMAL [None]
  - RHYTHM IDIOVENTRICULAR [None]
  - SINUS BRADYCARDIA [None]
